FAERS Safety Report 10152229 (Version 1)
Quarter: 2014Q2

REPORT INFORMATION
  Report Type: Spontaneous
  Country: FR (occurrence: FR)
  Receive Date: 20140505
  Receipt Date: 20140505
  Transmission Date: 20141212
  Serious: Yes (Hospitalization)
  Sender: FDA-Public Use
  Company Number: FR-SA-2014SA053078

PATIENT
  Age: 82 Year
  Sex: Female

DRUGS (11)
  1. KARDEGIC [Suspect]
     Indication: PRODUCT USED FOR UNKNOWN INDICATION
     Route: 048
  2. PLAVIX [Suspect]
     Indication: HAEMATOMA
     Route: 048
  3. PLAVIX [Suspect]
     Indication: SKIN NECROSIS
     Route: 048
  4. SERETIDE [Suspect]
     Indication: PRODUCT USED FOR UNKNOWN INDICATION
     Dosage: 2 DAYS
     Route: 055
  5. OROCAL D(3) [Concomitant]
     Route: 048
  6. ADENURIC [Concomitant]
     Dosage: STRENGTH: 80 MG
     Route: 048
  7. BISOPROLOL HEMIFUMARATE [Concomitant]
     Route: 048
  8. VASTEN [Concomitant]
     Dosage: STRENGTH:10MG
     Route: 048
  9. DOLIPRANE [Concomitant]
     Indication: PAIN
     Route: 048
  10. TARDYFERON [Concomitant]
     Route: 048
  11. COVERAM [Concomitant]
     Route: 048

REACTIONS (3)
  - Skin necrosis [Recovered/Resolved]
  - Impaired healing [Recovered/Resolved with Sequelae]
  - Traumatic haematoma [Recovered/Resolved]
